FAERS Safety Report 11588674 (Version 1)
Quarter: 2015Q4

REPORT INFORMATION
  Report Type: Spontaneous
  Country: US (occurrence: US)
  Receive Date: 20151002
  Receipt Date: 20151002
  Transmission Date: 20160304
  Serious: Yes (Hospitalization, Other)
  Sender: FDA-Public Use
  Company Number: US-ACTAVIS-2015-21082

PATIENT
  Age: 25 Year
  Sex: Male

DRUGS (1)
  1. IBUPROFEN (AMALLC) [Suspect]
     Active Substance: IBUPROFEN
     Indication: MUSCULOSKELETAL PAIN
     Dosage: FREQUENT USE
     Route: 065

REACTIONS (2)
  - Warm type haemolytic anaemia [Recovered/Resolved]
  - Hypereosinophilic syndrome [Recovered/Resolved]
